FAERS Safety Report 17289370 (Version 2)
Quarter: 2020Q1

REPORT INFORMATION
  Report Type: Report from Study
  Country: US (occurrence: US)
  Receive Date: 20200120
  Receipt Date: 20200203
  Transmission Date: 20200409
  Serious: Yes (Death, Hospitalization, Other)
  Sender: FDA-Public Use
  Company Number: US-ASTELLAS-2019US031945

PATIENT
  Age: 89 Year
  Sex: Male

DRUGS (1)
  1. ENZALUTAMIDE [Suspect]
     Active Substance: ENZALUTAMIDE
     Indication: PROSTATE CANCER
     Route: 048
     Dates: start: 20190723

REACTIONS (5)
  - Nausea [Unknown]
  - Death [Fatal]
  - Vomiting [Unknown]
  - Chest pain [Unknown]
  - Gastric infection [Unknown]

NARRATIVE: CASE EVENT DATE: 20200119
